FAERS Safety Report 4544999-1 (Version None)
Quarter: 2005Q1

REPORT INFORMATION
  Report Type: 
  Country: None (occurrence: None)
  Receive Date: 20050105
  Receipt Date: 20050104
  Transmission Date: 20050727
  Serious: Yes (Hospitalization)
  Sender: FDA-Public Use
  Company Number: US-GLAXOSMITHKLINE-A0539309A

PATIENT
  Age: 24 Year
  Sex: Male

DRUGS (3)
  1. IMITREX [Suspect]
     Indication: MIGRAINE
     Dosage: 6MG PER DAY
     Route: 058
     Dates: start: 20050102
  2. DEMEROL [Concomitant]
     Indication: MIGRAINE
  3. XYLOCAINE [Concomitant]
     Indication: MIGRAINE
     Route: 045

REACTIONS (8)
  - ARTHRALGIA [None]
  - BLOOD CREATINE PHOSPHOKINASE INCREASED [None]
  - BLOOD PRESSURE INCREASED [None]
  - CHEST PAIN [None]
  - ELECTROCARDIOGRAM ABNORMAL [None]
  - FLUSHING [None]
  - MYOSITIS [None]
  - RASH [None]
